FAERS Safety Report 6395386-5 (Version None)
Quarter: 2009Q4

REPORT INFORMATION
  Report Type: 
  Country: None (occurrence: None)
  Receive Date: 20091009
  Receipt Date: 20091002
  Transmission Date: 20100525
  Serious: Yes (Other)
  Sender: FDA-Public Use
  Company Number: US-ELI_LILLY_AND_COMPANY-US200910000476

PATIENT
  Age: 50 Year
  Sex: Female

DRUGS (3)
  1. HUMULIN 70/30 [Suspect]
     Dosage: UNK, UNK
     Dates: start: 19970101
  2. HUMULIN 70/30 [Suspect]
     Dosage: 35 U, UNK
     Dates: start: 20090929
  3. CODEINE [Concomitant]

REACTIONS (13)
  - CONFUSIONAL STATE [None]
  - EYE DISORDER [None]
  - FALL [None]
  - FATIGUE [None]
  - HYPERHIDROSIS [None]
  - HYPOKINESIA [None]
  - INCORRECT DOSE ADMINISTERED [None]
  - MUSCLE TIGHTNESS [None]
  - OVERWEIGHT [None]
  - SHOCK HYPOGLYCAEMIC [None]
  - SOMNOLENCE [None]
  - TIBIA FRACTURE [None]
  - WEIGHT INCREASED [None]
